FAERS Safety Report 23773722 (Version 5)
Quarter: 2024Q3

REPORT INFORMATION
  Report Type: Spontaneous
  Country: US (occurrence: US)
  Receive Date: 20240423
  Receipt Date: 20240924
  Transmission Date: 20241016
  Serious: No
  Sender: PFIZER
  Company Number: US-PFIZER INC-202400079759

PATIENT
  Age: 74 Year
  Sex: Male
  Weight: 84.37 kg

DRUGS (3)
  1. GENOTROPIN [Suspect]
     Active Substance: SOMATROPIN
     Indication: Angiopathy
     Dosage: 0.6 MG, DAILY
     Route: 058
  2. SYNTHROID [Concomitant]
     Active Substance: LEVOTHYROXINE SODIUM
     Dosage: 112 UG, 1X/DAY
  3. HYDROCORTISONE [Concomitant]
     Active Substance: HYDROCORTISONE\HYDROCORTISONE ACETATE
     Dosage: 20 MG, 1X/DAY

REACTIONS (2)
  - Off label use [Unknown]
  - Device use issue [Unknown]
